FAERS Safety Report 7494590-2 (Version None)
Quarter: 2011Q2

REPORT INFORMATION
  Report Type: 
  Country: None (occurrence: None)
  Receive Date: 20110520
  Receipt Date: 20110516
  Transmission Date: 20111010
  Serious: Yes (Life-Threatening)
  Sender: FDA-Public Use
  Company Number: PHHY2011US41641

PATIENT
  Age: 59 Year
  Sex: Female

DRUGS (2)
  1. DIOVAN [Suspect]
     Dosage: 160 MG, QD
  2. HYDROCODONE [Concomitant]

REACTIONS (9)
  - MUSCULOSKELETAL PAIN [None]
  - FEELING ABNORMAL [None]
  - DYSPNOEA [None]
  - PARAESTHESIA [None]
  - ANXIETY [None]
  - HYPOAESTHESIA [None]
  - CHEST PAIN [None]
  - NECK PAIN [None]
  - MIDDLE INSOMNIA [None]
